FAERS Safety Report 5732552-3 (Version None)
Quarter: 2008Q2

REPORT INFORMATION
  Report Type: 
  Country: None (occurrence: None)
  Receive Date: 20080507
  Receipt Date: 20080422
  Transmission Date: 20081010
  Serious: Yes (Death)
  Sender: FDA-Public Use
  Company Number: 2008BM000088

PATIENT
  Sex: Male

DRUGS (5)
  1. NAGLAZYME [Suspect]
     Indication: MUCOPOLYSACCHARIDOSIS VI
     Dates: start: 20071130
  2. ALDACTONE [Concomitant]
  3. FUROSEMIDE /00032602/ [Concomitant]
  4. SILDENAFIL /01367502/ [Concomitant]
  5. CARVEDILOL [Concomitant]

REACTIONS (5)
  - BRONCHIAL OBSTRUCTION [None]
  - CARDIO-RESPIRATORY ARREST [None]
  - MULTI-ORGAN FAILURE [None]
  - PULMONARY HYPERTENSION [None]
  - RENAL FAILURE [None]
